FAERS Safety Report 7113124-5 (Version None)
Quarter: 2010Q4

REPORT INFORMATION
  Report Type: 
  Country: None (occurrence: None)
  Receive Date: 20101119
  Receipt Date: 20101118
  Transmission Date: 20110411
  Serious: Yes (Hospitalization, Other)
  Sender: FDA-Public Use
  Company Number: DE-ABBOTT-10P-062-0684720-00

PATIENT
  Sex: Female
  Weight: 92 kg

DRUGS (3)
  1. HUMIRA [Suspect]
     Indication: CROHN'S DISEASE
     Route: 058
     Dates: start: 20100204
  2. HUMIRA [Suspect]
     Dosage: 160 MG IN WEEK 0
     Dates: start: 20100204, end: 20100204
  3. HUMIRA [Suspect]
     Dosage: 80 MG IN WEEK 2
     Dates: start: 20100218, end: 20100218

REACTIONS (1)
  - BREAST ENLARGEMENT [None]
